FAERS Safety Report 7790396-5 (Version None)
Quarter: 2011Q3

REPORT INFORMATION
  Report Type: 
  Country: None (occurrence: None)
  Receive Date: 20110901
  Receipt Date: 20110517
  Transmission Date: 20111222
  Serious: Yes (Hospitalization, Disabling, Other)
  Sender: FDA-Public Use
  Company Number: 282503USA

PATIENT
  Sex: Female

DRUGS (2)
  1. METOCLOPRAMIDE [Suspect]
     Indication: GASTROOESOPHAGEAL REFLUX DISEASE
  2. METOCLOPRAMIDE [Suspect]
     Indication: GASTROOESOPHAGEAL REFLUX DISEASE

REACTIONS (15)
  - DYSTONIA [None]
  - TREMOR [None]
  - RESTLESS LEGS SYNDROME [None]
  - TARDIVE DYSKINESIA [None]
  - PARKINSONISM [None]
  - AKATHISIA [None]
  - VISUAL IMPAIRMENT [None]
  - NEUROPATHY PERIPHERAL [None]
  - DYSKINESIA [None]
  - DEPRESSION [None]
  - NERVOUS SYSTEM DISORDER [None]
  - CONDITION AGGRAVATED [None]
  - SUICIDAL IDEATION [None]
  - EXTRAPYRAMIDAL DISORDER [None]
  - METABOLIC DISORDER [None]
